FAERS Safety Report 13175778 (Version 1)
Quarter: 2017Q1

REPORT INFORMATION
  Report Type: Spontaneous
  Country: JP (occurrence: JP)
  Receive Date: 20170201
  Receipt Date: 20170201
  Transmission Date: 20170428
  Serious: No
  Sender: FDA-Public Use
  Company Number: JP-ELI_LILLY_AND_COMPANY-JP201701010349

PATIENT
  Age: 84 Year
  Sex: Female

DRUGS (2)
  1. CYMBALTA [Suspect]
     Active Substance: DULOXETINE HYDROCHLORIDE
     Indication: LUMBAR SPINAL STENOSIS
     Dosage: 40 MG, QD
     Route: 048
     Dates: start: 201611
  2. CALONAL [Suspect]
     Active Substance: ACETAMINOPHEN
     Indication: LUMBAR SPINAL STENOSIS
     Dosage: UNK
     Route: 048
     Dates: start: 201611

REACTIONS (2)
  - Off label use [Not Recovered/Not Resolved]
  - Hepatic function abnormal [Not Recovered/Not Resolved]

NARRATIVE: CASE EVENT DATE: 201611
